FAERS Safety Report 7588113-7 (Version None)
Quarter: 2011Q2

REPORT INFORMATION
  Report Type: 
  Country: None (occurrence: None)
  Receive Date: 20110603
  Receipt Date: 20110414
  Transmission Date: 20111010
  Serious: No
  Sender: FDA-Public Use
  Company Number: 2011SP017051

PATIENT
  Age: 47 Year
  Sex: Male

DRUGS (1)
  1. SAPHRIS [Suspect]
     Indication: PRODUCT USED FOR UNKNOWN INDICATION
     Dosage: 5 MG;HS;SL
     Route: 060

REACTIONS (6)
  - UNDERDOSE [None]
  - HYPOAESTHESIA [None]
  - MUSCULAR WEAKNESS [None]
  - INAPPROPRIATE SCHEDULE OF DRUG ADMINISTRATION [None]
  - MUSCLE SPASMS [None]
  - DIZZINESS [None]
